FAERS Safety Report 11441750 (Version 1)
Quarter: 2015Q3

REPORT INFORMATION
  Report Type: Report from Study
  Country: US (occurrence: US)
  Receive Date: 20150901
  Receipt Date: 20150901
  Transmission Date: 20151125
  Serious: Yes (Death, Other)
  Sender: FDA-Public Use
  Company Number: US-ASTELLAS-2015US022480

PATIENT
  Age: 56 Year
  Sex: Male

DRUGS (7)
  1. ERLOTINIB [Suspect]
     Active Substance: ERLOTINIB
     Indication: MALIGNANT URINARY TRACT NEOPLASM
     Route: 048
  2. GEMZAR [Concomitant]
     Active Substance: GEMCITABINE HYDROCHLORIDE
     Indication: PRODUCT USED FOR UNKNOWN INDICATION
     Route: 042
  3. HYDROCODONE [Concomitant]
     Active Substance: HYDROCODONE
     Indication: PRODUCT USED FOR UNKNOWN INDICATION
     Dosage: UNK UNK, UNKNOWN FREQ.
     Route: 065
  4. AVASTIN [Suspect]
     Active Substance: BEVACIZUMAB
     Dosage: 1000 MG, EVERY 15 DAYS
     Route: 042
  5. ONDANSETRON HCL [Concomitant]
     Active Substance: ONDANSETRON HYDROCHLORIDE
     Indication: PRODUCT USED FOR UNKNOWN INDICATION
     Route: 065
  6. AVASTIN [Suspect]
     Active Substance: BEVACIZUMAB
     Indication: MALIGNANT URINARY TRACT NEOPLASM
     Route: 042
     Dates: start: 20051209
  7. EFFEXOR [Concomitant]
     Active Substance: VENLAFAXINE HYDROCHLORIDE
     Indication: PRODUCT USED FOR UNKNOWN INDICATION
     Route: 048

REACTIONS (18)
  - Feeling abnormal [Unknown]
  - Diarrhoea [Unknown]
  - Drug intolerance [Unknown]
  - Anxiety [Unknown]
  - Pain of skin [Unknown]
  - Sinusitis [Unknown]
  - Rectal haemorrhage [Unknown]
  - Drug dose omission [Unknown]
  - Off label use [Unknown]
  - Malignant neoplasm progression [Unknown]
  - Dizziness [Unknown]
  - Muscle spasms [Recovered/Resolved]
  - Death [Fatal]
  - Pleuritic pain [Unknown]
  - Dyspnoea [Unknown]
  - Epistaxis [Unknown]
  - Pain [Unknown]
  - Rash pustular [Unknown]

NARRATIVE: CASE EVENT DATE: 20070227
